FAERS Safety Report 17217145 (Version 1)
Quarter: 2019Q4

REPORT INFORMATION
  Report Type: Report from Study
  Country: US (occurrence: US)
  Receive Date: 20191231
  Receipt Date: 20191231
  Transmission Date: 20200122
  Serious: Yes (Hospitalization)
  Sender: FDA-Public Use
  Company Number: US-BAXTER-2019BAX026245

PATIENT
  Age: 63 Year
  Sex: Male

DRUGS (13)
  1. DEXAMETHASONE. [Suspect]
     Active Substance: DEXAMETHASONE
     Indication: ACUTE LYMPHOCYTIC LEUKAEMIA
     Dosage: REGIMEN A, DAILY FOR 4 DAYS ON DAYS 1-4 AND DAYS 11-14 (APPROXIMATE)
     Route: 042
  2. CYCLOPHOSPHAMIDE FOR INJECTION, USP [Suspect]
     Active Substance: CYCLOPHOSPHAMIDE
     Indication: ACUTE LYMPHOCYTIC LEUKAEMIA
     Dosage: REGIMEN A,  OVER 3 HOURS TWICE A DAY ON DAYS 1-3
     Route: 042
  3. VINCRISTINE SULFATE. [Suspect]
     Active Substance: VINCRISTINE SULFATE
     Indication: ACUTE LYMPHOCYTIC LEUKAEMIA
     Dosage: REGIMEN A, DAY 1 AND DAY 8 (APPROXIMATE)
     Route: 042
  4. INOTUZUMAB OZOGAMICIN [Suspect]
     Active Substance: INOTUZUMAB OZOGAMICIN
     Indication: ACUTE LYMPHOCYTIC LEUKAEMIA
     Dosage: REGIMEN A, OVER 1 HOUR ON DAYS 2 AND 8 OF CYCLES 1 AND 3 (APPROXIMATE)
     Route: 042
     Dates: start: 20191011
  5. RITUXIMAB. [Suspect]
     Active Substance: RITUXIMAB
     Indication: ACUTE LYMPHOCYTIC LEUKAEMIA
     Dosage: REGIMEN A, ON DAY 2 AND DAY 8 OF CYCLES 1 AND 3
     Route: 042
  6. PEGFILGRASTIM [Suspect]
     Active Substance: PEGFILGRASTIM
     Indication: ACUTE LYMPHOCYTIC LEUKAEMIA
     Dosage: REGIMEN A, (OR FILGRASTIM 5-10 MCG/KG DAILY) ON DAY 4
     Route: 058
  7. METHOTREXATE SODIUM. [Suspect]
     Active Substance: METHOTREXATE SODIUM
     Indication: ACUTE LYMPHOCYTIC LEUKAEMIA
     Dosage: REGIMEN B, OVER 2HRS ON DAY 1
     Route: 042
  8. ARA-C [Suspect]
     Active Substance: CYTARABINE
     Indication: ACUTE LYMPHOCYTIC LEUKAEMIA
     Dosage: REGIMEN B, OVER 3 HOURS TWICE A DAY X 4 DOSES ON DAYS 2 AND 3
     Route: 042
  9. INOTUZUMAB OZOGAMICIN [Suspect]
     Active Substance: INOTUZUMAB OZOGAMICIN
     Dosage: REGIMEN B, ON DAYS 2 AND 8 OF CYCLES 2 AND 4
     Route: 042
  10. PEGFILGRASTIM [Suspect]
     Active Substance: PEGFILGRASTIM
     Dosage: REGIMEN B, FILGRASTIM 5-10 MCG/KG DAILY
     Route: 058
  11. MESNEX [Suspect]
     Active Substance: MESNA
     Indication: ACUTE LYMPHOCYTIC LEUKAEMIA
     Dosage: REGIMEN A,  DAILY OVER 24 HOURS FOR 3 DAYS ON DAYS 1-3
     Route: 042
  12. METHOTREXATE SODIUM. [Suspect]
     Active Substance: METHOTREXATE SODIUM
     Dosage: REGIMEN B, CONTINUOUS INFUSION OVER 22 HOURS ON DAY 1
     Route: 065
  13. RITUXIMAB. [Suspect]
     Active Substance: RITUXIMAB
     Dosage: REGIMEN B, ON DAY 2 AND 8 OF CYCLES 2 AND 4
     Route: 042

REACTIONS (1)
  - Febrile neutropenia [Recovered/Resolved]

NARRATIVE: CASE EVENT DATE: 20191124
